FAERS Safety Report 11134620 (Version 1)
Quarter: 2015Q2

REPORT INFORMATION
  Report Type: Report from Study
  Country: ZA (occurrence: ZA)
  Receive Date: 20150525
  Receipt Date: 20150525
  Transmission Date: 20150821
  Serious: Yes (Other)
  Sender: FDA-Public Use
  Company Number: ZA-ROCHE-1174105

PATIENT
  Age: 42 Year
  Sex: Female
  Weight: 62.1 kg

DRUGS (8)
  1. VEMURAFENIB [Suspect]
     Active Substance: VEMURAFENIB
     Indication: METASTATIC MALIGNANT MELANOMA
     Dosage: DATE OF LAST DOSE PRIOR TO SQUAMOUS CELL PAPILLOMA OF THROAT ON 21/NOV/2012 AND TO CUTANEOUS SQUAMOU
     Route: 048
     Dates: start: 20121001, end: 20121123
  2. TRAMAL [Concomitant]
     Active Substance: TRAMADOL
     Route: 065
     Dates: start: 20121017, end: 20121030
  3. TEARS NATURALE [Concomitant]
     Route: 065
     Dates: start: 20121017
  4. GLYCO-THYMOLINE [Concomitant]
     Dosage: MOUTH WASH
     Route: 065
     Dates: start: 20121017
  5. DAKTARIN ORAL GEL [Concomitant]
     Active Substance: MICONAZOLE
     Route: 065
     Dates: start: 20121017
  6. ELOCON CREAM [Concomitant]
     Route: 065
     Dates: start: 20121025
  7. ADVANTAN [Concomitant]
     Active Substance: CORTICOSTEROID NOS
     Dosage: CREAM
     Route: 065
     Dates: start: 20121025, end: 20121126
  8. MYCOSTATIN [Concomitant]
     Active Substance: NYSTATIN
     Route: 065
     Dates: start: 20121017

REACTIONS (2)
  - Papilloma [Recovered/Resolved]
  - Squamous cell carcinoma of skin [Recovered/Resolved]

NARRATIVE: CASE EVENT DATE: 20121121
